FAERS Safety Report 15701490 (Version 1)
Quarter: 2018Q4

REPORT INFORMATION
  Report Type: Spontaneous
  Country: CN (occurrence: CN)
  Receive Date: 20181207
  Receipt Date: 20181207
  Transmission Date: 20190205
  Serious: Yes (Other)
  Sender: FDA-Public Use
  Company Number: CN-BAXTER-2018BAX029540

PATIENT
  Age: 13 Year
  Sex: Female
  Weight: 40 kg

DRUGS (12)
  1. MERCAPTOPURINE. [Suspect]
     Active Substance: MERCAPTOPURINE
     Indication: ACUTE LYMPHOCYTIC LEUKAEMIA
     Dosage: TABLETS
     Route: 048
     Dates: start: 20181017, end: 20181024
  2. METHOTREXATE. [Suspect]
     Active Substance: METHOTREXATE
     Indication: ACUTE LYMPHOCYTIC LEUKAEMIA
     Dosage: METHOTREXATE + DEXAMETHASONE SODIUM PHOSPHATE + 0.9% SODIUM CHLORIDE
     Route: 037
     Dates: start: 20181017, end: 20181017
  3. ENDOXAN [Suspect]
     Active Substance: CYCLOPHOSPHAMIDE
     Indication: ACUTE LYMPHOCYTIC LEUKAEMIA
     Dosage: CYCLOPHOSPHAMIDE POWDER INJECTION + (4:1) GLUCOSE AND SODIUM CHLORIDE INJECTION + 0.9% SODIUM CHLORI
     Route: 041
     Dates: start: 20181017, end: 20181017
  4. CYTARABINE HYDROCHLORIDE [Suspect]
     Active Substance: CYTARABINE HYDROCHLORIDE
     Indication: ACUTE LYMPHOCYTIC LEUKAEMIA
     Dosage: CYTARABINE HYDROCHLORIDE + (4:1) GLUCOSE AND SODIUM CHLORIDE + 0.9% SODIUM CHLORIDE
     Route: 041
     Dates: start: 20181017, end: 20181020
  5. CYTARABINE HYDROCHLORIDE [Suspect]
     Active Substance: CYTARABINE HYDROCHLORIDE
     Dosage: CYTARABINE HYDROCHLORIDE + 0.9% SODIUM CHLORIDE
     Route: 037
     Dates: start: 20181017, end: 20181017
  6. 5% GLUCOSE AND 0.9% SODIUM CHLORIDE INJECTION [Suspect]
     Active Substance: DEXTROSE\SODIUM CHLORIDE
     Dosage: CYCLOPHOSPHAMIDE POWDER INJECTION + (4:1) GLUCOSE AND SODIUM CHLORIDE INJECTION + 0.9% SODIUM CHLORI
     Route: 041
     Dates: start: 20181017, end: 20181017
  7. 0.9% SODIUM CHLORIDE INJECTION [Suspect]
     Active Substance: SODIUM CHLORIDE
     Dosage: CYTARABINE HYDROCHLORIDE + 0.9% SODIUM CHLORIDE
     Route: 037
     Dates: start: 20181017, end: 20181017
  8. 0.9% SODIUM CHLORIDE INJECTION [Suspect]
     Active Substance: SODIUM CHLORIDE
     Dosage: CYCLOPHOSPHAMIDE POWDER INJECTION + (4:1) GLUCOSE AND SODIUM CHLORIDE INJECTION + 0.9% SODIUM CHLORI
     Route: 041
     Dates: start: 20181017, end: 20181017
  9. 0.9% SODIUM CHLORIDE INJECTION [Suspect]
     Active Substance: SODIUM CHLORIDE
     Dosage: METHOTREXATE + DEXAMETHASONE SODIUM PHOSPHATE + 0.9% SODIUM CHLORIDE
     Route: 037
     Dates: start: 20181017, end: 20181017
  10. DEXAMETHASONE SODIUM PHOSPHATE. [Suspect]
     Active Substance: DEXAMETHASONE SODIUM PHOSPHATE
     Indication: ACUTE LYMPHOCYTIC LEUKAEMIA
     Dosage: METHOTREXATE + DEXAMETHASONE SODIUM PHOSPHATE + 0.9% SODIUM CHLORIDE
     Route: 037
     Dates: start: 20181017, end: 20181017
  11. 5% GLUCOSE AND 0.9% SODIUM CHLORIDE INJECTION [Suspect]
     Active Substance: DEXTROSE\SODIUM CHLORIDE
     Indication: MEDICATION DILUTION
     Dosage: CYTARABINE HYDROCHLORIDE + (4:1) GLUCOSE AND SODIUM CHLORIDE + 0.9% SODIUM CHLORIDE
     Route: 041
     Dates: start: 20181017, end: 20181020
  12. 0.9% SODIUM CHLORIDE INJECTION [Suspect]
     Active Substance: SODIUM CHLORIDE
     Indication: MEDICATION DILUTION
     Dosage: CYTARABINE HYDROCHLORIDE + (4:1) GLUCOSE AND SODIUM CHLORIDE + 0.9% SODIUM CHLORIDE
     Route: 041
     Dates: start: 20181017, end: 20181020

REACTIONS (1)
  - Bone marrow failure [Recovering/Resolving]

NARRATIVE: CASE EVENT DATE: 20181024
